FAERS Safety Report 19410797 (Version 1)
Quarter: 2021Q2

REPORT INFORMATION
  Report Type: Spontaneous
  Country: US (occurrence: US)
  Receive Date: 20210614
  Receipt Date: 20210614
  Transmission Date: 20210717
  Serious: Yes (Hospitalization)
  Sender: FDA-Public Use
  Company Number: US-MACLEODS PHARMACEUTICALS US LTD-MAC2021031400

PATIENT

DRUGS (2)
  1. VANCOMYCIN [Concomitant]
     Active Substance: VANCOMYCIN
     Indication: PRODUCT USED FOR UNKNOWN INDICATION
     Dosage: 15 MILLIGRAM/KILOGRAM, EVERY 18 HOURS
     Route: 042
  2. ACYCLOVIR. [Suspect]
     Active Substance: ACYCLOVIR
     Indication: DISSEMINATED VARICELLA ZOSTER VIRUS INFECTION
     Dosage: UNK UNK, BID, 12.1 MG/KG EVERY 12 HOURS
     Route: 042

REACTIONS (3)
  - Neurotoxicity [Recovered/Resolved]
  - Hypovolaemia [Unknown]
  - Weight decreased [Unknown]
